FAERS Safety Report 14311547 (Version 4)
Quarter: 2018Q1

REPORT INFORMATION
  Report Type: Spontaneous
  Country: AU (occurrence: AU)
  Receive Date: 20171221
  Receipt Date: 20180226
  Transmission Date: 20180509
  Serious: Yes (Other)
  Sender: FDA-Public Use
  Company Number: AU-CONCORDIA PHARMACEUTICALS INC.-E2B_00008957

PATIENT
  Age: 51 Year
  Sex: Female

DRUGS (105)
  1. PREDNISOLONE. [Suspect]
     Active Substance: PREDNISOLONE
     Dates: start: 20140619
  2. HYDROXYCHLOROQUINE [Suspect]
     Active Substance: HYDROXYCHLOROQUINE
     Dates: start: 20140630
  3. HYDROXYCHLOROQUINE [Suspect]
     Active Substance: HYDROXYCHLOROQUINE
     Dates: start: 20140805
  4. HYDROXYCHLOROQUINE [Suspect]
     Active Substance: HYDROXYCHLOROQUINE
     Dates: start: 20140806
  5. HYDROXYCHLOROQUINE [Suspect]
     Active Substance: HYDROXYCHLOROQUINE
     Dates: start: 20140811
  6. HYDROXYCHLOROQUINE [Suspect]
     Active Substance: HYDROXYCHLOROQUINE
     Dates: start: 20140820
  7. HYDROXYCHLOROQUINE [Suspect]
     Active Substance: HYDROXYCHLOROQUINE
     Dates: start: 20141225
  8. AZATHIOPRINE. [Suspect]
     Active Substance: AZATHIOPRINE
     Dates: start: 20140802
  9. AZATHIOPRINE. [Suspect]
     Active Substance: AZATHIOPRINE
     Dates: start: 20140822
  10. PREDNISOLONE. [Suspect]
     Active Substance: PREDNISOLONE
     Indication: IMMUNE THROMBOCYTOPENIC PURPURA
  11. PREDNISOLONE. [Suspect]
     Active Substance: PREDNISOLONE
     Dates: start: 20140416
  12. PREDNISOLONE. [Suspect]
     Active Substance: PREDNISOLONE
     Dates: start: 20140420
  13. PREDNISOLONE. [Suspect]
     Active Substance: PREDNISOLONE
     Dates: start: 20140802
  14. HYDROXYCHLOROQUINE [Suspect]
     Active Substance: HYDROXYCHLOROQUINE
     Indication: IMMUNE THROMBOCYTOPENIC PURPURA
     Route: 048
     Dates: start: 20140529, end: 20141225
  15. HYDROXYCHLOROQUINE [Suspect]
     Active Substance: HYDROXYCHLOROQUINE
     Dates: start: 20140804
  16. HYDROXYCHLOROQUINE [Suspect]
     Active Substance: HYDROXYCHLOROQUINE
     Dates: start: 20141021
  17. AZATHIOPRINE. [Suspect]
     Active Substance: AZATHIOPRINE
     Dates: start: 20140630
  18. AZATHIOPRINE. [Suspect]
     Active Substance: AZATHIOPRINE
     Dates: start: 20140710, end: 20140713
  19. ELTROMBOPAG [Suspect]
     Active Substance: ELTROMBOPAG
     Dates: start: 20140710, end: 20140713
  20. ELTROMBOPAG [Suspect]
     Active Substance: ELTROMBOPAG
     Dates: start: 20140719
  21. ELTROMBOPAG [Suspect]
     Active Substance: ELTROMBOPAG
     Dates: start: 20140820
  22. ELTROMBOPAG [Suspect]
     Active Substance: ELTROMBOPAG
     Dates: start: 20140822
  23. ELTROMBOPAG [Suspect]
     Active Substance: ELTROMBOPAG
     Dates: start: 20140825
  24. IMMUNOGLOBULIN (IVIG) [Concomitant]
     Active Substance: HUMAN IMMUNOGLOBULIN G
     Route: 042
     Dates: start: 20140419
  25. ROMIPLOSTIM [Concomitant]
     Active Substance: ROMIPLOSTIM
     Indication: IMMUNE THROMBOCYTOPENIC PURPURA
     Dates: start: 20140825
  26. ROMIPLOSTIM [Concomitant]
     Active Substance: ROMIPLOSTIM
     Dates: start: 20141006
  27. ROMIPLOSTIM [Concomitant]
     Active Substance: ROMIPLOSTIM
     Dates: start: 20141023
  28. ROMIPLOSTIM [Concomitant]
     Active Substance: ROMIPLOSTIM
     Dates: start: 20150302
  29. ROMIPLOSTIM [Concomitant]
     Active Substance: ROMIPLOSTIM
     Dates: start: 20150729
  30. PREDNISOLONE. [Suspect]
     Active Substance: PREDNISOLONE
     Dates: start: 20140713
  31. PREDNISOLONE. [Suspect]
     Active Substance: PREDNISOLONE
     Dates: start: 20140807
  32. HYDROXYCHLOROQUINE [Suspect]
     Active Substance: HYDROXYCHLOROQUINE
     Dates: start: 20140619
  33. AZATHIOPRINE. [Suspect]
     Active Substance: AZATHIOPRINE
     Dates: start: 20140529
  34. AZATHIOPRINE. [Suspect]
     Active Substance: AZATHIOPRINE
     Dates: start: 20140723
  35. AZATHIOPRINE. [Suspect]
     Active Substance: AZATHIOPRINE
     Dates: start: 20140807
  36. AZATHIOPRINE. [Suspect]
     Active Substance: AZATHIOPRINE
     Dates: start: 20140829
  37. ELTROMBOPAG [Suspect]
     Active Substance: ELTROMBOPAG
     Dates: start: 20140702
  38. ELTROMBOPAG [Suspect]
     Active Substance: ELTROMBOPAG
     Dates: start: 20140705
  39. ELTROMBOPAG [Suspect]
     Active Substance: ELTROMBOPAG
     Dates: start: 20140720
  40. ROMIPLOSTIM [Concomitant]
     Active Substance: ROMIPLOSTIM
     Dates: start: 20140829
  41. PREDNISOLONE. [Suspect]
     Active Substance: PREDNISOLONE
     Dates: start: 20140424
  42. PREDNISOLONE. [Suspect]
     Active Substance: PREDNISOLONE
     Dates: start: 20140820
  43. HYDROXYCHLOROQUINE [Suspect]
     Active Substance: HYDROXYCHLOROQUINE
     Dates: start: 20140601
  44. HYDROXYCHLOROQUINE [Suspect]
     Active Substance: HYDROXYCHLOROQUINE
     Dates: start: 20141006
  45. AZATHIOPRINE. [Suspect]
     Active Substance: AZATHIOPRINE
     Dates: start: 20140720
  46. ELTROMBOPAG [Suspect]
     Active Substance: ELTROMBOPAG
     Dates: start: 20140723
  47. IMMUNOGLOBULIN (IVIG) [Concomitant]
     Active Substance: HUMAN IMMUNOGLOBULIN G
     Route: 042
     Dates: start: 20140519
  48. PREDNISOLONE. [Suspect]
     Active Substance: PREDNISOLONE
     Dates: start: 20140704
  49. PREDNISOLONE. [Suspect]
     Active Substance: PREDNISOLONE
     Dates: start: 20140720
  50. HYDROXYCHLOROQUINE [Suspect]
     Active Substance: HYDROXYCHLOROQUINE
     Dates: start: 20140819
  51. AZATHIOPRINE. [Suspect]
     Active Substance: AZATHIOPRINE
     Indication: IMMUNE THROMBOCYTOPENIC PURPURA
  52. AZATHIOPRINE. [Suspect]
     Active Substance: AZATHIOPRINE
     Dates: start: 20140702
  53. AZATHIOPRINE. [Suspect]
     Active Substance: AZATHIOPRINE
     Dates: start: 20140705
  54. ELTROMBOPAG [Suspect]
     Active Substance: ELTROMBOPAG
     Dates: start: 20140630
  55. ELTROMBOPAG [Suspect]
     Active Substance: ELTROMBOPAG
     Dates: start: 20140807
  56. FINGOLIMOD. [Concomitant]
     Active Substance: FINGOLIMOD
     Dates: start: 20140710, end: 20140712
  57. IMMUNOGLOBULIN (IVIG) [Concomitant]
     Active Substance: HUMAN IMMUNOGLOBULIN G
     Route: 042
     Dates: start: 20140601
  58. ROMIPLOSTIM [Concomitant]
     Active Substance: ROMIPLOSTIM
     Dates: start: 20141021
  59. ROMIPLOSTIM [Concomitant]
     Active Substance: ROMIPLOSTIM
     Dates: start: 20141225
  60. PREDNISOLONE. [Suspect]
     Active Substance: PREDNISOLONE
     Dates: start: 20140503
  61. PREDNISOLONE. [Suspect]
     Active Substance: PREDNISOLONE
     Dates: start: 20140508
  62. PREDNISOLONE. [Suspect]
     Active Substance: PREDNISOLONE
     Dates: start: 20140519
  63. PREDNISOLONE. [Suspect]
     Active Substance: PREDNISOLONE
     Dates: start: 20140702
  64. PREDNISOLONE. [Suspect]
     Active Substance: PREDNISOLONE
     Dates: start: 20140719
  65. PREDNISOLONE. [Suspect]
     Active Substance: PREDNISOLONE
     Dates: start: 20140723
  66. HYDROXYCHLOROQUINE [Suspect]
     Active Substance: HYDROXYCHLOROQUINE
     Dates: start: 20140812
  67. HYDROXYCHLOROQUINE [Suspect]
     Active Substance: HYDROXYCHLOROQUINE
     Dates: start: 20140813
  68. HYDROXYCHLOROQUINE [Suspect]
     Active Substance: HYDROXYCHLOROQUINE
     Dates: start: 20141023
  69. HYDROXYCHLOROQUINE [Suspect]
     Active Substance: HYDROXYCHLOROQUINE
     Dates: start: 20150302
  70. AZATHIOPRINE. [Suspect]
     Active Substance: AZATHIOPRINE
     Dates: start: 20140601
  71. AZATHIOPRINE. [Suspect]
     Active Substance: AZATHIOPRINE
     Dates: start: 20140619
  72. AZATHIOPRINE. [Suspect]
     Active Substance: AZATHIOPRINE
     Dates: start: 20140802
  73. AZATHIOPRINE. [Suspect]
     Active Substance: AZATHIOPRINE
     Dates: start: 20141006
  74. AZATHIOPRINE. [Suspect]
     Active Substance: AZATHIOPRINE
     Dates: start: 20141023
  75. ELTROMBOPAG [Suspect]
     Active Substance: ELTROMBOPAG
     Dates: start: 20140706
  76. IMMUNOGLOBULIN (IVIG) [Concomitant]
     Active Substance: HUMAN IMMUNOGLOBULIN G
     Indication: IMMUNE THROMBOCYTOPENIC PURPURA
     Dosage: (1G/KG)
     Route: 042
  77. IMMUNOGLOBULIN (IVIG) [Concomitant]
     Active Substance: HUMAN IMMUNOGLOBULIN G
     Route: 042
     Dates: start: 20140526
  78. PREDNISOLONE. [Suspect]
     Active Substance: PREDNISOLONE
     Dates: start: 20140419
  79. PREDNISOLONE. [Suspect]
     Active Substance: PREDNISOLONE
     Dates: start: 20140630
  80. HYDROXYCHLOROQUINE [Suspect]
     Active Substance: HYDROXYCHLOROQUINE
     Dates: start: 20140802
  81. HYDROXYCHLOROQUINE [Suspect]
     Active Substance: HYDROXYCHLOROQUINE
     Dates: start: 20140810
  82. HYDROXYCHLOROQUINE [Suspect]
     Active Substance: HYDROXYCHLOROQUINE
     Dates: start: 20140822
  83. HYDROXYCHLOROQUINE [Suspect]
     Active Substance: HYDROXYCHLOROQUINE
     Dates: start: 20140825
  84. AZATHIOPRINE. [Suspect]
     Active Substance: AZATHIOPRINE
     Dates: start: 20140704
  85. AZATHIOPRINE. [Suspect]
     Active Substance: AZATHIOPRINE
     Dates: start: 20140820
  86. AZATHIOPRINE. [Suspect]
     Active Substance: AZATHIOPRINE
     Dates: start: 20150302
  87. ELTROMBOPAG [Suspect]
     Active Substance: ELTROMBOPAG
     Dates: start: 20140710
  88. ELTROMBOPAG [Suspect]
     Active Substance: ELTROMBOPAG
     Dates: start: 20140720
  89. ELTROMBOPAG [Suspect]
     Active Substance: ELTROMBOPAG
     Dates: start: 20140802
  90. FINGOLIMOD. [Concomitant]
     Active Substance: FINGOLIMOD
     Dates: start: 20140713
  91. ETHINYLESTRADIOL, LEVONORGESTREL [Concomitant]
     Active Substance: ETHINYL ESTRADIOL\LEVONORGESTREL
  92. IMMUNOGLOBULIN (IVIG) [Concomitant]
     Active Substance: HUMAN IMMUNOGLOBULIN G
     Route: 042
     Dates: start: 20140529
  93. ROMIPLOSTIM [Concomitant]
     Active Substance: ROMIPLOSTIM
     Dates: start: 20150415
  94. ROMIPLOSTIM [Concomitant]
     Active Substance: ROMIPLOSTIM
     Dates: start: 20150730
  95. PREDNISOLONE. [Suspect]
     Active Substance: PREDNISOLONE
     Dates: start: 20140430
  96. PREDNISOLONE. [Suspect]
     Active Substance: PREDNISOLONE
     Dates: start: 20140505
  97. PREDNISOLONE. [Suspect]
     Active Substance: PREDNISOLONE
     Dates: start: 20140705
  98. HYDROXYCHLOROQUINE [Suspect]
     Active Substance: HYDROXYCHLOROQUINE
     Dates: start: 20140829
  99. HYDROXYCHLOROQUINE [Suspect]
     Active Substance: HYDROXYCHLOROQUINE
     Dates: start: 20150302
  100. AZATHIOPRINE. [Suspect]
     Active Substance: AZATHIOPRINE
     Dates: start: 20140825
  101. AZATHIOPRINE. [Suspect]
     Active Substance: AZATHIOPRINE
     Dates: start: 20141021
  102. AZATHIOPRINE. [Suspect]
     Active Substance: AZATHIOPRINE
     Dates: start: 20141225
  103. ELTROMBOPAG [Suspect]
     Active Substance: ELTROMBOPAG
     Dates: start: 20140704
  104. FINGOLIMOD. [Concomitant]
     Active Substance: FINGOLIMOD
     Dates: start: 20140704
  105. IMMUNOGLOBULIN (IVIG) [Concomitant]
     Active Substance: HUMAN IMMUNOGLOBULIN G
     Route: 042
     Dates: start: 20140522

REACTIONS (3)
  - Drug ineffective [Unknown]
  - Psychotic disorder [Unknown]
  - Off label use [Unknown]

NARRATIVE: CASE EVENT DATE: 20140529
